FAERS Safety Report 5319775-2 (Version None)
Quarter: 2007Q1

REPORT INFORMATION
  Report Type: 
  Country: None (occurrence: None)
  Receive Date: 20070205
  Receipt Date: 20061120
  Transmission Date: 20070707
  Serious: Yes (Other)
  Sender: FDA-Public Use
  Company Number: PHEH2006US12563

PATIENT
  Age: 54 Year
  Sex: Female

DRUGS (1)
  1. RITALIN [Suspect]
     Indication: ATTENTION DEFICIT/HYPERACTIVITY DISORDER

REACTIONS (3)
  - BIPOLAR II DISORDER [None]
  - DEPRESSED MOOD [None]
  - PSYCHOMOTOR HYPERACTIVITY [None]
